FAERS Safety Report 6992970-2 (Version None)
Quarter: 2010Q3

REPORT INFORMATION
  Report Type: 
  Country: None (occurrence: None)
  Receive Date: 20100917
  Receipt Date: 20100716
  Transmission Date: 20110219
  Serious: No
  Sender: FDA-Public Use
  Company Number: US-ASTRAZENECA-2010SE27111

PATIENT
  Age: 6579 Day
  Sex: Female
  Weight: 54.4 kg

DRUGS (4)
  1. SEROQUEL XR [Suspect]
     Indication: MANIA
     Dosage: TITRATED DIALY 25 TO I75 TO 100 TO 200 AND FINALLY 300MG DIALY
     Route: 048
  2. SEROQUEL XR [Suspect]
     Route: 048
     Dates: start: 20100501, end: 20100713
  3. SEROQUEL XR [Suspect]
     Route: 048
     Dates: start: 20100601, end: 20100713
  4. SEROQUEL XR [Suspect]
     Route: 048

REACTIONS (5)
  - DIZZINESS [None]
  - DRY MOUTH [None]
  - HEADACHE [None]
  - INCREASED APPETITE [None]
  - MUSCLE SPASMS [None]
